FAERS Safety Report 8399694 (Version 2)
Quarter: 2013Q4

REPORT INFORMATION
  Report Type: Report from Study
  Country: AU (occurrence: AU)
  Receive Date: 20120210
  Receipt Date: 20131011
  Transmission Date: 20140711
  Serious: Yes (Other)
  Sender: FDA-Public Use
  Company Number: AU-ASTRAZENECA-2012SE06846

PATIENT
  Age: 22645 Day
  Sex: Female

DRUGS (8)
  1. SEROQUEL XR [Suspect]
     Indication: SOMATOFORM DISORDER
     Route: 048
     Dates: start: 20111102, end: 20120131
  2. DIABEX [Concomitant]
  3. INSULIN [Concomitant]
     Dosage: 8 U/S AT NIGHT
  4. PRILACE [Concomitant]
  5. LEXAM [Concomitant]
  6. SIMVASTATIN [Concomitant]
  7. PANADEINE [Concomitant]
     Dosage: AS REQUIRED
  8. PARIET [Concomitant]

REACTIONS (1)
  - Deep vein thrombosis [Recovered/Resolved]
